FAERS Safety Report 17909747 (Version 2)
Quarter: 2021Q2

REPORT INFORMATION
  Report Type: Spontaneous
  Country: US (occurrence: US)
  Receive Date: 20200618
  Receipt Date: 20210426
  Transmission Date: 20210717
  Serious: Yes (Other)
  Sender: FDA-Public Use
  Company Number: US-TAKEDA-2020TUS026645

PATIENT
  Age: 58 Year
  Sex: Male
  Weight: 98 kg

DRUGS (2)
  1. TRINTELLIX [Suspect]
     Active Substance: VORTIOXETINE HYDROBROMIDE
     Indication: PRODUCT USED FOR UNKNOWN INDICATION
     Dosage: 20 MILLIGRAM
     Route: 065
  2. TRINTELLIX [Suspect]
     Active Substance: VORTIOXETINE HYDROBROMIDE
     Dosage: 40 MILLIGRAM, QD
     Route: 065

REACTIONS (14)
  - Blood pressure increased [Unknown]
  - Amnesia [Unknown]
  - Weight decreased [Unknown]
  - Accidental overdose [Unknown]
  - Feeling hot [Unknown]
  - Lower limb fracture [Recovering/Resolving]
  - Agitation [Unknown]
  - Tibia fracture [Unknown]
  - Hallucination [Unknown]
  - Seizure [Unknown]
  - Withdrawal syndrome [Unknown]
  - Feeling abnormal [Unknown]
  - Pain [Unknown]
  - Dizziness [Unknown]

NARRATIVE: CASE EVENT DATE: 20210206
